FAERS Safety Report 9260577 (Version 2)
Quarter: 2013Q2

REPORT INFORMATION
  Report Type: Spontaneous
  Country: US (occurrence: US)
  Receive Date: 20130426
  Receipt Date: 20130501
  Transmission Date: 20140414
  Serious: Yes (Other)
  Sender: FDA-Public Use
  Company Number: US-RB-053220-13

PATIENT
  Age: 52 Year
  Sex: Female

DRUGS (5)
  1. MUCINEX [Suspect]
     Indication: SINUS CONGESTION
     Route: 048
     Dates: start: 20110401
  2. MUCINEX [Suspect]
     Indication: SINUS HEADACHE
     Route: 048
     Dates: start: 20110401
  3. MEDROL [Suspect]
     Indication: PRODUCT USED FOR UNKNOWN INDICATION
     Dates: start: 201301
  4. INDERAL [Concomitant]
     Indication: PRODUCT USED FOR UNKNOWN INDICATION
  5. ASPIRIN [Concomitant]
     Indication: PRODUCT USED FOR UNKNOWN INDICATION

REACTIONS (6)
  - Heart rate irregular [Not Recovered/Not Resolved]
  - Sensation of heaviness [Unknown]
  - Tremor [Not Recovered/Not Resolved]
  - Unevaluable event [Unknown]
  - Inappropriate schedule of drug administration [Not Recovered/Not Resolved]
  - Off label use [Unknown]
